FAERS Safety Report 11311581 (Version 1)
Quarter: 2015Q3

REPORT INFORMATION
  Report Type: Spontaneous
  Country: US (occurrence: US)
  Receive Date: 20150727
  Receipt Date: 20150727
  Transmission Date: 20151125
  Serious: Yes (Other)
  Sender: FDA-Public Use
  Company Number: US-JNJCP-30000295775

PATIENT
  Age: 25 Year
  Sex: Female

DRUGS (3)
  1. BENADRYL [Concomitant]
     Active Substance: DIPHENHYDRAMINE HYDROCHLORIDE
     Indication: SWELLING
     Route: 048
  2. UNKNOWN ACNE MEDICATION [Concomitant]
     Indication: ACNE
  3. NEUTROGENA PRODUCTS [Suspect]
     Active Substance: UNSPECIFIED INGREDIENT
     Indication: PRODUCT USED FOR UNKNOWN INDICATION
     Dates: start: 20150628

REACTIONS (2)
  - Pharyngeal oedema [Unknown]
  - Application site swelling [Unknown]

NARRATIVE: CASE EVENT DATE: 20150628
